FAERS Safety Report 25086828 (Version 1)
Quarter: 2025Q1

REPORT INFORMATION
  Report Type: Report from Study
  Country: CA (occurrence: CA)
  Receive Date: 20250318
  Receipt Date: 20250318
  Transmission Date: 20250409
  Serious: Yes (Hospitalization)
  Sender: ABBVIE
  Company Number: CA-ABBVIE-6174874

PATIENT
  Age: 38 Year
  Sex: Male

DRUGS (1)
  1. RINVOQ [Suspect]
     Active Substance: UPADACITINIB
     Indication: Dermatitis atopic
     Route: 048
     Dates: end: 202502

REACTIONS (4)
  - Skin bacterial infection [Recovered/Resolved]
  - Blood cholesterol increased [Unknown]
  - Immunosuppression [Unknown]
  - Eczema [Unknown]

NARRATIVE: CASE EVENT DATE: 20250220
